FAERS Safety Report 23985726 (Version 4)
Quarter: 2025Q2

REPORT INFORMATION
  Report Type: Spontaneous
  Country: CA (occurrence: CA)
  Receive Date: 20240618
  Receipt Date: 20250506
  Transmission Date: 20250716
  Serious: Yes (Other)
  Sender: PFIZER
  Company Number: CA-PFIZER INC-202300118769

PATIENT
  Age: 68 Year
  Sex: Female
  Weight: 54 kg

DRUGS (8)
  1. RUXIENCE [Suspect]
     Active Substance: RITUXIMAB-PVVR
     Indication: Granulomatosis with polyangiitis
     Route: 042
     Dates: start: 20230320, end: 20230403
  2. RUXIENCE [Suspect]
     Active Substance: RITUXIMAB-PVVR
     Route: 042
  3. RUXIENCE [Suspect]
     Active Substance: RITUXIMAB-PVVR
     Route: 042
     Dates: start: 20230925, end: 20240306
  4. RUXIENCE [Suspect]
     Active Substance: RITUXIMAB-PVVR
     Route: 042
     Dates: start: 20240916
  5. PREDNISONE [Concomitant]
     Active Substance: PREDNISONE
  6. PREDNISONE [Concomitant]
     Active Substance: PREDNISONE
     Dosage: 10 MG, DAILY (TAPERING)
     Route: 048
  7. PREDNISONE [Concomitant]
     Active Substance: PREDNISONE
     Dosage: 30 MG, DAILY
     Route: 048
  8. PREDNISONE [Concomitant]
     Active Substance: PREDNISONE
     Dosage: 5 MG, DAILY (TAPERING)
     Route: 048

REACTIONS (22)
  - Nephrolithiasis [Unknown]
  - Bronchiectasis [Unknown]
  - Anti-neutrophil cytoplasmic antibody positive vasculitis [Unknown]
  - Salivary gland neoplasm [Unknown]
  - Lung opacity [Unknown]
  - Pneumonia [Unknown]
  - Mastoiditis [Unknown]
  - Tympanic membrane disorder [Unknown]
  - Skin lesion [Unknown]
  - Scar [Unknown]
  - Pulmonary mass [Unknown]
  - Pleural thickening [Unknown]
  - Paranasal sinus mucosal hypertrophy [Unknown]
  - Sinus disorder [Unknown]
  - Condition aggravated [Recovered/Resolved]
  - Urine cytology abnormal [Unknown]
  - Hypertension [Unknown]
  - BK virus infection [Unknown]
  - Condition aggravated [Recovering/Resolving]
  - Off label use [Unknown]
  - Off label use [Unknown]
  - Intentional product use issue [Unknown]

NARRATIVE: CASE EVENT DATE: 20230320
